FAERS Safety Report 6124589-X (Version None)
Quarter: 2009Q1

REPORT INFORMATION
  Report Type: 
  Country: None (occurrence: None)
  Receive Date: 20090319
  Receipt Date: 20090312
  Transmission Date: 20090719
  Serious: Yes (Hospitalization, Congenital Anomaly)
  Sender: FDA-Public Use
  Company Number: A0747564A

PATIENT
  Sex: Female

DRUGS (5)
  1. PAXIL [Suspect]
     Indication: PANIC REACTION
     Dates: start: 20061101, end: 20080401
  2. PAROXETINE HCL [Suspect]
     Indication: PANIC ATTACK
     Dates: start: 20070130, end: 20071022
  3. VITAMIN TAB [Concomitant]
  4. SYNTHROID [Concomitant]
  5. UNKNOWN MEDICATION TO TREAT EMESIS [Concomitant]

REACTIONS (9)
  - AORTA HYPOPLASIA [None]
  - AORTIC VALVE INCOMPETENCE [None]
  - AORTICOPULMONARY SEPTAL DEFECT [None]
  - ATRIAL SEPTAL DEFECT [None]
  - COARCTATION OF THE AORTA [None]
  - DRUG EXPOSURE DURING PREGNANCY [None]
  - MITRAL VALVE INCOMPETENCE [None]
  - PATENT DUCTUS ARTERIOSUS [None]
  - TRICUSPID VALVE INCOMPETENCE [None]
